FAERS Safety Report 8226396-0 (Version None)
Quarter: 2012Q1

REPORT INFORMATION
  Report Type: 
  Country: None (occurrence: None)
  Receive Date: 20120321
  Receipt Date: 20120219
  Transmission Date: 20120608
  Serious: Yes (Other)
  Sender: FDA-Public Use
  Company Number: PHHY2012IL015427

PATIENT
  Age: 58 Year
  Sex: Female

DRUGS (2)
  1. SANDOSTATIN LAR [Suspect]
     Indication: CARCINOID TUMOUR
     Dosage: 20 MG, EVERY 28 DAYS
     Dates: start: 20111123
  2. SANDOSTATIN LAR [Suspect]
     Dosage: 20 MG, EVERY 28 DAYS
     Dates: start: 20120219

REACTIONS (4)
  - PALPITATIONS [None]
  - BLOOD PRESSURE INCREASED [None]
  - VERTIGO [None]
  - DYSPNOEA [None]
